FAERS Safety Report 5829570-3 (Version None)
Quarter: 2008Q3

REPORT INFORMATION
  Report Type: 
  Country: None (occurrence: None)
  Receive Date: 20080731
  Receipt Date: 20080719
  Transmission Date: 20090109
  Serious: Yes (Other)
  Sender: FDA-Public Use
  Company Number: US-PFIZER INC-2008020153

PATIENT
  Sex: Female
  Weight: 68.9 kg

DRUGS (21)
  1. CHANTIX [Suspect]
     Indication: SMOKING CESSATION THERAPY
  2. OTHER HYPNOTICS AND SEDATIVES [Suspect]
  3. LAMICTAL [Concomitant]
     Dosage: DAILY DOSE:25MG
  4. PREVACID [Concomitant]
  5. EFFEXOR [Concomitant]
  6. XANAX [Concomitant]
  7. LUNESTA [Concomitant]
  8. THORAZINE [Concomitant]
  9. PALIPERIDONE [Concomitant]
  10. PRILOSEC [Concomitant]
  11. NEXIUM [Concomitant]
  12. LITHIUM [Concomitant]
  13. BENZATROPINE [Concomitant]
  14. LITHIUM CARBONATE [Concomitant]
  15. CENESTIN [Concomitant]
  16. TOPAMAX [Concomitant]
  17. ACETYLSALICYLIC ACID SRT [Concomitant]
  18. GEODON [Concomitant]
  19. ESTRADIOL [Concomitant]
  20. CHLORAL HYDRATE [Concomitant]
  21. OTHER RESPIRATORY SYSTEM PRODUCTS [Concomitant]

REACTIONS (28)
  - ABASIA [None]
  - ABDOMINAL PAIN UPPER [None]
  - ABNORMAL BEHAVIOUR [None]
  - ABNORMAL DREAMS [None]
  - AGEUSIA [None]
  - ASTHENIA [None]
  - BLOOD GLUCOSE DECREASED [None]
  - DEHYDRATION [None]
  - DIZZINESS [None]
  - DRUG INEFFECTIVE [None]
  - DYSGEUSIA [None]
  - FEELING ABNORMAL [None]
  - FEELING GUILTY [None]
  - FLATULENCE [None]
  - GINGIVAL DISORDER [None]
  - HEADACHE [None]
  - LETHARGY [None]
  - MALAISE [None]
  - NAUSEA [None]
  - NEPHROLITHIASIS [None]
  - NERVOUSNESS [None]
  - PAIN [None]
  - PAROSMIA [None]
  - RESPIRATORY THERAPY [None]
  - SENILE DEMENTIA [None]
  - STRESS [None]
  - VOMITING [None]
  - WEIGHT INCREASED [None]
